FAERS Safety Report 5520100-2 (Version None)
Quarter: 2007Q4

REPORT INFORMATION
  Report Type: 
  Country: None (occurrence: None)
  Receive Date: 20071116
  Receipt Date: 20071108
  Transmission Date: 20080405
  Serious: Yes (Hospitalization, Other)
  Sender: FDA-Public Use
  Company Number: RU-SHR-RU-2007-042505

PATIENT

DRUGS (1)
  1. BETASERON [Suspect]
     Dosage: 8 MIU, EVERY 2D
     Route: 058
     Dates: start: 20060401, end: 20071031

REACTIONS (4)
  - ABDOMINAL ABSCESS [None]
  - HYPERTHERMIA [None]
  - INJECTION SITE PAIN [None]
  - INJECTION SITE REACTION [None]
